FAERS Safety Report 26120981 (Version 1)
Quarter: 2025Q4

REPORT INFORMATION
  Report Type: Spontaneous
  Country: VN (occurrence: VN)
  Receive Date: 20251204
  Receipt Date: 20251204
  Transmission Date: 20260118
  Serious: Yes (Other)
  Sender: ABBVIE
  Company Number: VN-RICHTER-2025-GR-015691

PATIENT
  Sex: Female

DRUGS (1)
  1. CARIPRAZINE [Suspect]
     Active Substance: CARIPRAZINE
     Indication: Schizophrenia
     Dosage: 1.5 MG/DAY???REAGILA 1.5 MG
     Route: 048

REACTIONS (3)
  - Mental impairment [Recovered/Resolved]
  - Social avoidant behaviour [Recovered/Resolved]
  - Emotional disorder [Recovered/Resolved]
